FAERS Safety Report 25032922 (Version 2)
Quarter: 2025Q2

REPORT INFORMATION
  Report Type: Spontaneous
  Country: US (occurrence: US)
  Receive Date: 20250303
  Receipt Date: 20250408
  Transmission Date: 20250717
  Serious: Yes (Other)
  Sender: GRIFOLS
  Company Number: US-IGSA-BIG0033270

PATIENT
  Age: 65 Year
  Sex: Male

DRUGS (2)
  1. GAMUNEX-C [Suspect]
     Active Substance: HUMAN IMMUNOGLOBULIN G
     Indication: Product used for unknown indication
     Route: 042
     Dates: start: 20250220, end: 20250220
  2. GAMUNEX-C [Suspect]
     Active Substance: HUMAN IMMUNOGLOBULIN G
     Dosage: 40 GRAM, Q.3WK.
     Route: 042

REACTIONS (7)
  - Pruritus [Recovering/Resolving]
  - Urticaria [Recovering/Resolving]
  - Mouth swelling [Recovering/Resolving]
  - Pharyngeal swelling [Recovering/Resolving]
  - Erythema [Recovering/Resolving]
  - Rash papular [Recovering/Resolving]
  - Near death experience [Unknown]

NARRATIVE: CASE EVENT DATE: 20250220
